FAERS Safety Report 4719619-3 (Version None)
Quarter: 2005Q3

REPORT INFORMATION
  Report Type: 
  Country: None (occurrence: None)
  Receive Date: 20050721
  Receipt Date: 20040413
  Transmission Date: 20060218
  Serious: No
  Sender: FDA-Public Use
  Company Number: US-GLAXOSMITHKLINE-A0508231A

PATIENT
  Sex: Female
  Weight: 70 kg

DRUGS (10)
  1. AVANDIA [Suspect]
     Route: 048
  2. INSULIN [Concomitant]
     Dosage: 52U TWICE PER DAY
     Route: 058
  3. ALTACE [Concomitant]
     Indication: DRUG USE FOR UNKNOWN INDICATION
     Dosage: 10MG PER DAY
     Route: 048
  4. POTASSIUM CHLORIDE [Concomitant]
     Dosage: 20MEQ PER DAY
     Route: 048
  5. LASIX [Concomitant]
     Indication: CARDIAC FAILURE
     Dosage: 40MG PER DAY
     Route: 048
  6. ZOCOR [Concomitant]
     Dosage: 20MG PER DAY
     Route: 048
  7. COREG [Concomitant]
     Indication: CARDIAC FAILURE
     Dosage: 6.25MG TWICE PER DAY
     Route: 048
  8. DIFLUCAN [Concomitant]
     Dosage: 150MG AS REQUIRED
     Route: 048
  9. PREDNISONE [Concomitant]
     Indication: SARCOIDOSIS
     Dosage: 10MG PER DAY
     Route: 048
  10. ACCUPRIL [Concomitant]
     Indication: DRUG USE FOR UNKNOWN INDICATION
     Dosage: 20MG IN THE MORNING
     Route: 048

REACTIONS (1)
  - ADVERSE EVENT [None]
